FAERS Safety Report 6717620-1 (Version None)
Quarter: 2010Q2

REPORT INFORMATION
  Report Type: 
  Country: None (occurrence: None)
  Receive Date: 20100507
  Receipt Date: 20100507
  Transmission Date: 20101027
  Serious: Yes (Other)
  Sender: FDA-Public Use
  Company Number: None

PATIENT
  Sex: Female
  Weight: 83.9154 kg

DRUGS (1)
  1. IC BUDEPRION SR 150 MG TEV [Suspect]
     Indication: DEPRESSION
     Dosage: 150 MD AM AND PM PO
     Route: 048
     Dates: start: 20100427, end: 20100504

REACTIONS (2)
  - DRUG INEFFECTIVE [None]
  - PRODUCT SUBSTITUTION ISSUE [None]
